FAERS Safety Report 7056043-5 (Version None)
Quarter: 2010Q4

REPORT INFORMATION
  Report Type: 
  Country: None (occurrence: None)
  Receive Date: 20101021
  Receipt Date: 20101012
  Transmission Date: 20110411
  Serious: Yes (Hospitalization)
  Sender: FDA-Public Use
  Company Number: B0678879A

PATIENT
  Age: 42 Year
  Sex: Female
  Weight: 75 kg

DRUGS (5)
  1. SUMATRIPTAN SUCCINATE [Suspect]
     Indication: MIGRAINE
     Route: 058
     Dates: start: 20101006, end: 20101006
  2. DULOXETINE [Suspect]
     Indication: MIGRAINE
     Dosage: 60MG PER DAY
     Route: 048
     Dates: start: 20101004, end: 20101007
  3. DIAZEPAM [Concomitant]
  4. NITROFURANTOIN [Concomitant]
  5. CYPROHEPTADINE HYDROCHLORIDE [Concomitant]

REACTIONS (3)
  - MUSCLE SPASMS [None]
  - MUSCLE TWITCHING [None]
  - SEROTONIN SYNDROME [None]
